FAERS Safety Report 15738125 (Version 2)
Quarter: 2018Q4

REPORT INFORMATION
  Report Type: Spontaneous
  Country: CA (occurrence: CA)
  Receive Date: 20181219
  Receipt Date: 20181227
  Transmission Date: 20190205
  Serious: Yes (Other)
  Sender: FDA-Public Use
  Company Number: CA-ROCHE-2231805

PATIENT
  Sex: Male
  Weight: 71.7 kg

DRUGS (5)
  1. RATIO-NYSTATIN [Concomitant]
     Active Substance: NYSTATIN
  2. CELLCEPT [Suspect]
     Active Substance: MYCOPHENOLATE MOFETIL\MYCOPHENOLATE MOFETIL HYDROCHLORIDE
     Indication: UVEITIS
     Route: 065
     Dates: start: 201610
  3. CELLCEPT [Suspect]
     Active Substance: MYCOPHENOLATE MOFETIL\MYCOPHENOLATE MOFETIL HYDROCHLORIDE
     Indication: MORVAN SYNDROME
  4. PREDNISONE. [Concomitant]
     Active Substance: PREDNISONE
  5. RANITIDINE. [Concomitant]
     Active Substance: RANITIDINE

REACTIONS (6)
  - Eye symptom [Unknown]
  - Drug ineffective [Unknown]
  - Visual acuity reduced [Unknown]
  - Uveitis [Unknown]
  - Weight decreased [Unknown]
  - Cataract [Unknown]
